FAERS Safety Report 7765217-7 (Version None)
Quarter: 2011Q3

REPORT INFORMATION
  Report Type: 
  Country: None (occurrence: None)
  Receive Date: 20110921
  Receipt Date: 20110919
  Transmission Date: 20111222
  Serious: Yes (Hospitalization)
  Sender: FDA-Public Use
  Company Number: CA-GLAXOSMITHKLINE-A0941278A

PATIENT
  Sex: Female

DRUGS (2)
  1. VENTOLIN HFA [Concomitant]
  2. VOTRIENT [Suspect]
     Indication: RENAL CANCER METASTATIC
     Dosage: 800MG PER DAY
     Route: 048
     Dates: start: 20101217, end: 20110809

REACTIONS (10)
  - DRY SKIN [None]
  - HAIR COLOUR CHANGES [None]
  - SKIN ULCER [None]
  - FATIGUE [None]
  - ASTHENIA [None]
  - ASTHMA [None]
  - DIARRHOEA [None]
  - PAIN IN EXTREMITY [None]
  - HAEMOGLOBIN DECREASED [None]
  - NEOPLASM MALIGNANT [None]
